FAERS Safety Report 24729423 (Version 2)
Quarter: 2025Q1

REPORT INFORMATION
  Report Type: Spontaneous
  Country: US (occurrence: US)
  Receive Date: 20241213
  Receipt Date: 20250214
  Transmission Date: 20250409
  Serious: Yes (Hospitalization, Other)
  Sender: SANOFI AVENTIS
  Company Number: US-SA-2024SA365376

PATIENT
  Age: 12 Year
  Sex: Male

DRUGS (1)
  1. DUPIXENT [Suspect]
     Active Substance: DUPILUMAB
     Indication: Eosinophilic oesophagitis
     Dosage: 300 MG, QW
     Route: 058
     Dates: start: 202410, end: 20241208

REACTIONS (4)
  - Appendicitis perforated [Unknown]
  - Abdominal pain [Unknown]
  - Pyrexia [Unknown]
  - Abdominal symptom [Unknown]

NARRATIVE: CASE EVENT DATE: 20240101
